FAERS Safety Report 15659518 (Version 1)
Quarter: 2018Q4

REPORT INFORMATION
  Report Type: Spontaneous
  Country: US (occurrence: US)
  Receive Date: 20181127
  Receipt Date: 20181127
  Transmission Date: 20190205
  Serious: No
  Sender: FDA-Public Use
  Company Number: US-AUROBINDO-AUR-APL-2018-018241

PATIENT
  Sex: Female

DRUGS (1)
  1. FLUCONAZOLE TABLETS 150 MG [Suspect]
     Active Substance: FLUCONAZOLE
     Indication: FUNGAL INFECTION
     Dosage: 150 MILLIGRAM, 1X/WEEK, EVERY FRIDAY FOR 4 WEEKS
     Route: 048
     Dates: start: 20180316

REACTIONS (3)
  - Product use complaint [Not Recovered/Not Resolved]
  - Drug ineffective [Unknown]
  - Underdose [Not Recovered/Not Resolved]
